FAERS Safety Report 10540520 (Version 1)
Quarter: 2014Q4

REPORT INFORMATION
  Report Type: Spontaneous
  Country: JP (occurrence: JP)
  Receive Date: 20141024
  Receipt Date: 20141024
  Transmission Date: 20150529
  Serious: Yes (Hospitalization)
  Sender: FDA-Public Use
  Company Number: JP-SA-2014SA140129

PATIENT
  Sex: Female

DRUGS (2)
  1. IMMUCYST [Suspect]
     Active Substance: BACILLUS CALMETTE-GUERIN SUBSTRAIN CONNAUGHT LIVE ANTIGEN
     Indication: BLADDER CANCER
     Route: 043
  2. IMMUNOBLADDER [Suspect]
     Active Substance: BCG VACCINE
     Indication: IMMUNISATION
     Route: 065

REACTIONS (7)
  - Pyrexia [Recovered/Resolved]
  - Conjunctivitis [Unknown]
  - Kidney enlargement [Unknown]
  - Eye discharge [Unknown]
  - Ocular hyperaemia [Unknown]
  - Reiter^s syndrome [Unknown]
  - Arthralgia [Unknown]
